FAERS Safety Report 17062195 (Version 2)
Quarter: 2019Q4

REPORT INFORMATION
  Report Type: Report from Study
  Country: FR (occurrence: FR)
  Receive Date: 20191122
  Receipt Date: 20191122
  Transmission Date: 20200122
  Serious: Yes (Hospitalization)
  Sender: FDA-Public Use
  Company Number: FR-ROCHE-2471488

PATIENT
  Age: 57 Year
  Sex: Female

DRUGS (2)
  1. VINORELBINE [Suspect]
     Active Substance: VINORELBINE TARTRATE
     Indication: NON-SMALL CELL LUNG CANCER
     Dosage: ON DAYS 1, 3 AND 5 OF EACH WEEK OF THE 21-DAY CYCLE.
     Route: 048
     Dates: start: 20191004
  2. ATEZOLIZUMAB. [Suspect]
     Active Substance: ATEZOLIZUMAB
     Indication: NON-SMALL CELL LUNG CANCER
     Dosage: CYCLE 1  ON DAY 1 OF EACH 21-DAY CYCLE.
     Route: 042
     Dates: start: 20191004

REACTIONS (1)
  - Superior vena cava syndrome [Recovered/Resolved]

NARRATIVE: CASE EVENT DATE: 20191104
